FAERS Safety Report 8837486 (Version 1)
Quarter: 2012Q4

REPORT INFORMATION
  Report Type: Report from Study
  Country: JP (occurrence: JP)
  Receive Date: 20121012
  Receipt Date: 20121012
  Transmission Date: 20130627
  Serious: Yes (Hospitalization, Other)
  Sender: FDA-Public Use
  Company Number: JP-MYLANLABS-2012S1020539

PATIENT
  Age: 65 Year
  Sex: Male
  Weight: 67.9 kg

DRUGS (11)
  1. EPIRUBICIN [Suspect]
     Indication: HEPATIC NEOPLASM MALIGNANT
     Dosage: cyclical
     Route: 013
     Dates: start: 20120907, end: 20120907
  2. EPIRUBICIN [Suspect]
     Indication: HEPATIC NEOPLASM MALIGNANT
     Route: 013
     Dates: start: 20100702, end: 20100702
  3. TSU-68 [Suspect]
     Indication: HEPATIC NEOPLASM MALIGNANT
     Route: 048
     Dates: start: 20120913, end: 20120927
  4. AMARYL [Concomitant]
     Indication: DIABETES MELLITUS
     Route: 048
  5. FAMOTIDINE [Concomitant]
     Indication: GASTRITIS EROSIVE
  6. AMLODIN [Concomitant]
     Indication: HYPERTENSION
     Route: 048
  7. NU-LOTAN [Concomitant]
     Indication: HYPERTENSION
     Route: 048
  8. LOCOID [Concomitant]
     Indication: PSORIASIS
     Route: 061
  9. ANTEBATE [Concomitant]
     Indication: PSORIASIS
     Route: 061
  10. VASELINE /00473501/ [Concomitant]
     Indication: PSORIASIS
     Route: 061
  11. CLOBETASOL PROPIONATE [Concomitant]
     Indication: PSORIASIS
     Route: 061

REACTIONS (1)
  - Liver abscess [Recovering/Resolving]
